FAERS Safety Report 10090536 (Version 1)
Quarter: 2014Q2

REPORT INFORMATION
  Report Type: Spontaneous
  Country: US (occurrence: None)
  Receive Date: 20140417
  Receipt Date: 20140417
  Transmission Date: 20141212
  Serious: Yes (Hospitalization)
  Sender: FDA-Public Use
  Company Number: UTC-046596

PATIENT
  Age: 66 Year
  Sex: Female

DRUGS (2)
  1. REMODULIN [Suspect]
     Indication: COR PULMONALE CHRONIC
     Dosage: (0.123 UG/KG, 1 IN 1 MIN)
     Route: 041
     Dates: start: 20070613
  2. LETAIRIS (AMBRISENTAN) [Concomitant]

REACTIONS (1)
  - Pneumonia [None]
